FAERS Safety Report 18882744 (Version 1)
Quarter: 2021Q1

REPORT INFORMATION
  Report Type: Report from Study
  Country: US (occurrence: US)
  Receive Date: 20210211
  Receipt Date: 20210211
  Transmission Date: 20210420
  Serious: Yes (Hospitalization)
  Sender: FDA-Public Use
  Company Number: US-BAUSCH-BL-2021-005168

PATIENT
  Age: 53 Year
  Sex: Male

DRUGS (1)
  1. XIFAXAN [Suspect]
     Active Substance: RIFAXIMIN
     Indication: HEPATIC CIRRHOSIS
     Route: 048
     Dates: start: 202101

REACTIONS (4)
  - Headache [Not Recovered/Not Resolved]
  - Amnesia [Recovering/Resolving]
  - Intentional dose omission [Unknown]
  - Ulcer [Unknown]

NARRATIVE: CASE EVENT DATE: 2021
